FAERS Safety Report 4887724-7 (Version None)
Quarter: 2006Q1

REPORT INFORMATION
  Report Type: 
  Country: None (occurrence: None)
  Receive Date: 20060119
  Receipt Date: 20060116
  Transmission Date: 20060701
  Serious: Yes (Other)
  Sender: FDA-Public Use
  Company Number: S05-USA-05093-01

PATIENT

DRUGS (1)
  1. LEXAPRO [Suspect]

REACTIONS (2)
  - CARDIAC DISORDER [None]
  - INTENTIONAL OVERDOSE [None]
